FAERS Safety Report 17629821 (Version 1)
Quarter: 2020Q2

REPORT INFORMATION
  Report Type: Spontaneous
  Country: US (occurrence: US)
  Receive Date: 20200406
  Receipt Date: 20200406
  Transmission Date: 20200713
  Serious: Yes (Other)
  Sender: FDA-Public Use
  Company Number: US-PFIZER INC-2020139658

PATIENT
  Age: 63 Year
  Sex: Female

DRUGS (1)
  1. PRISTIQ EXTENDED-RELEASE [Suspect]
     Active Substance: DESVENLAFAXINE SUCCINATE
     Dosage: UNK

REACTIONS (7)
  - Therapeutic response unexpected [Unknown]
  - Pain [Unknown]
  - Product dose omission [Unknown]
  - Injury [Unknown]
  - Feeling abnormal [Recovered/Resolved]
  - Loss of consciousness [Unknown]
  - Pre-existing condition improved [Unknown]
